FAERS Safety Report 10455747 (Version 2)
Quarter: 2014Q4

REPORT INFORMATION
  Report Type: Spontaneous
  Country: US (occurrence: US)
  Receive Date: 20140916
  Receipt Date: 20141205
  Transmission Date: 20150528
  Serious: No
  Sender: FDA-Public Use
  Company Number: US-ASTELLAS-2014US009390

PATIENT
  Age: 77 Year
  Sex: Male

DRUGS (1)
  1. XTANDI [Suspect]
     Active Substance: ENZALUTAMIDE
     Indication: PRODUCT USED FOR UNKNOWN INDICATION
     Route: 065
     Dates: start: 20140716, end: 201409

REACTIONS (4)
  - Abdominal pain [Unknown]
  - Fatigue [Unknown]
  - Sinusitis [Unknown]
  - Sleep disorder [Unknown]

NARRATIVE: CASE EVENT DATE: 201407
